FAERS Safety Report 8110033-X (Version None)
Quarter: 2012Q1

REPORT INFORMATION
  Report Type: 
  Country: None (occurrence: None)
  Receive Date: 20120202
  Receipt Date: 20120124
  Transmission Date: 20120608
  Serious: No
  Sender: FDA-Public Use
  Company Number: US-AMGEN-USASP2012004166

PATIENT
  Age: 51 Year
  Sex: Female
  Weight: 77.098 kg

DRUGS (11)
  1. KLOR-CON [Concomitant]
     Dosage: 8 MEQ, UNK
     Route: 048
  2. HYDROCHLOROTHIAZIDE [Concomitant]
     Dosage: 12.5 MG, UNK
     Route: 048
  3. MULTI TABS [Concomitant]
     Route: 048
  4. IRON [Concomitant]
     Dosage: 18 MG, UNK
     Route: 048
  5. MOBIC [Concomitant]
     Dosage: 7.5 MG, UNK
     Route: 048
  6. ASPIRIN [Concomitant]
     Dosage: 81 MG, UNK
     Route: 048
  7. BYSTOLIC [Concomitant]
     Dosage: 10 MG, UNK
     Route: 048
  8. METHOTREXATE [Concomitant]
     Dosage: UNK MG, UNK
     Route: 058
  9. ENBREL [Suspect]
     Indication: PRODUCT USED FOR UNKNOWN INDICATION
     Dosage: 50 MG, QWK
     Route: 058
     Dates: start: 20110208
  10. FOLIC ACID [Concomitant]
     Dosage: 1 MG, UNK
     Route: 048
  11. VITAMIN D [Concomitant]
     Dosage: 1000 IU, UNK
     Route: 048

REACTIONS (4)
  - SINUS CONGESTION [None]
  - NASOPHARYNGITIS [None]
  - INJECTION SITE PRURITUS [None]
  - INJECTION SITE ERYTHEMA [None]
